FAERS Safety Report 10394939 (Version 1)
Quarter: 2014Q3

REPORT INFORMATION
  Report Type: Spontaneous
  Country: IE (occurrence: IE)
  Receive Date: 20140820
  Receipt Date: 20140820
  Transmission Date: 20150326
  Serious: Yes (Death)
  Sender: FDA-Public Use
  Company Number: IE-AMGEN-IRLSP2014062787

PATIENT
  Age: 63 Year
  Sex: Male

DRUGS (11)
  1. MAXOLON [Concomitant]
     Active Substance: METOCLOPRAMIDE HYDROCHLORIDE
     Dosage: UNK
  2. ODRIK [Concomitant]
     Active Substance: TRANDOLAPRIL
     Dosage: UNK
  3. TORVACOL [Concomitant]
     Dosage: UNK
  4. ZOFRAN                             /00955301/ [Concomitant]
     Active Substance: ONDANSETRON HYDROCHLORIDE
     Dosage: UNK
  5. NEULASTA [Suspect]
     Active Substance: PEGFILGRASTIM
     Indication: COLORECTAL CANCER
     Dosage: 6MG/0.6MLS, POST CHEMO EVERY TWO WEEKS
     Route: 058
     Dates: start: 20121015
  6. XYMEL [Concomitant]
     Dosage: UNK
  7. MYCOSTATIN [Concomitant]
     Active Substance: NYSTATIN
     Dosage: UNK
  8. KIN [Concomitant]
     Dosage: UNK
  9. ZOPITAN [Concomitant]
     Dosage: UNK
  10. DEXAMETHASONE. [Concomitant]
     Active Substance: DEXAMETHASONE
     Dosage: UNK
  11. COLGOUT [Concomitant]
     Active Substance: COLCHICINE
     Dosage: UNK

REACTIONS (1)
  - Death [Fatal]
